FAERS Safety Report 12677881 (Version 1)
Quarter: 2016Q3

REPORT INFORMATION
  Report Type: Spontaneous
  Country: US (occurrence: US)
  Receive Date: 20160823
  Receipt Date: 20160823
  Transmission Date: 20161109
  Serious: No
  Sender: FDA-Public Use
  Company Number: US-TARO-2015TAR00842

PATIENT
  Sex: Male

DRUGS (6)
  1. CENTRUM MULTIVITAMIN [Concomitant]
     Dosage: UNK
     Dates: end: 2015
  2. WARFARIN SODIUM TABLETS USP 5MG [Suspect]
     Active Substance: WARFARIN SODIUM
     Dosage: 7.5 MG, 4-5X/WEEK
     Dates: start: 1995
  3. WARFARIN SODIUM TABLETS USP 5MG [Suspect]
     Active Substance: WARFARIN SODIUM
     Dosage: 7.5 MG, 2X/WEEK
  4. WARFARIN SODIUM TABLETS USP 5MG [Suspect]
     Active Substance: WARFARIN SODIUM
     Dosage: 10 MG, 5X/WEEK
  5. DRUGSTORE BRAND MULTIVITAMIN [Suspect]
     Active Substance: VITAMINS
     Dosage: UNK
     Dates: start: 2015
  6. WARFARIN SODIUM TABLETS USP 5MG [Suspect]
     Active Substance: WARFARIN SODIUM
     Dosage: 10 MG ABOUT TWICE A WEEK
     Dates: start: 1995

REACTIONS (2)
  - International normalised ratio abnormal [Not Recovered/Not Resolved]
  - Product substitution issue [None]

NARRATIVE: CASE EVENT DATE: 2015
